FAERS Safety Report 13039257 (Version 1)
Quarter: 2016Q4

REPORT INFORMATION
  Report Type: Spontaneous
  Country: FR (occurrence: FR)
  Receive Date: 20161219
  Receipt Date: 20161219
  Transmission Date: 20170207
  Serious: Yes (Death)
  Sender: FDA-Public Use
  Company Number: PHHY2016FR173759

PATIENT

DRUGS (6)
  1. HYPNOVEL [Suspect]
     Active Substance: MIDAZOLAM\MIDAZOLAM HYDROCHLORIDE
     Indication: PRODUCT USED FOR UNKNOWN INDICATION
     Dosage: 50/10 MG/ML, UNK
     Route: 042
     Dates: start: 20161017
  2. URBANYL [Suspect]
     Active Substance: CLOBAZAM
     Indication: PRODUCT USED FOR UNKNOWN INDICATION
     Dosage: 10 MG, BID (REPORTED AS SCORED TABLET)
     Route: 048
     Dates: start: 20161017, end: 20161018
  3. TEGRETOL [Suspect]
     Active Substance: CARBAMAZEPINE
     Indication: PRODUCT USED FOR UNKNOWN INDICATION
     Dosage: UNK
     Route: 048
     Dates: start: 20161013, end: 20161018
  4. PRODILANTIN [Suspect]
     Active Substance: FOSPHENYTOIN SODIUM
     Indication: PRODUCT USED FOR UNKNOWN INDICATION
     Dosage: 75 MG/ML, UNK
     Route: 042
     Dates: start: 20161013, end: 20161016
  5. KEPPRA [Suspect]
     Active Substance: LEVETIRACETAM
     Indication: PRODUCT USED FOR UNKNOWN INDICATION
     Dosage: 100 MG/ML, UNK
     Route: 042
     Dates: start: 20161013, end: 20161018
  6. RIVOTRIL [Suspect]
     Active Substance: CLONAZEPAM
     Indication: PRODUCT USED FOR UNKNOWN INDICATION
     Dosage: 1/1 MG/ML, UNK (REPORTED AS SOLUTION TO BE DILUTED FOR INJECTION IN AMPOULES)
     Route: 042
     Dates: start: 20161013, end: 20161018

REACTIONS (3)
  - Status epilepticus [Fatal]
  - Drug ineffective [Fatal]
  - Drug interaction [Fatal]
